FAERS Safety Report 21077086 (Version 1)
Quarter: 2022Q3

REPORT INFORMATION
  Report Type: Spontaneous
  Country: US (occurrence: US)
  Receive Date: 20220713
  Receipt Date: 20220713
  Transmission Date: 20221027
  Serious: Yes (Other)
  Sender: FDA-Public Use
  Company Number: US-BRISTOL-MYERS SQUIBB COMPANY-2022-069888

PATIENT
  Age: 62 Year
  Sex: Female

DRUGS (12)
  1. REVLIMID [Suspect]
     Active Substance: LENALIDOMIDE
     Indication: Plasma cell myeloma
     Dosage: TAKE 1 CAPSULE BY MOUTH ON DAYS 1-14 OF 21 DAY CYCLE. REST FOR 7 DAYS INBETWEEN CYCLES
     Route: 048
     Dates: start: 20220610, end: 20220706
  2. COLACE CAP [Concomitant]
     Indication: Product used for unknown indication
  3. DECADRON TAB [Concomitant]
     Indication: Product used for unknown indication
     Route: 065
  4. FLOVENT DISK AER [Concomitant]
     Indication: Product used for unknown indication
     Route: 065
  5. MOBIC TAB [Concomitant]
     Indication: Product used for unknown indication
     Route: 065
  6. MOTRIN IB [Concomitant]
     Active Substance: IBUPROFEN
     Indication: Product used for unknown indication
     Route: 065
  7. POMALYST [Concomitant]
     Active Substance: POMALIDOMIDE
     Indication: Product used for unknown indication
     Route: 065
  8. PREVACID [Concomitant]
     Active Substance: LANSOPRAZOLE
     Indication: Product used for unknown indication
     Route: 065
  9. PRILOSEC OTC TAB [Concomitant]
     Indication: Product used for unknown indication
     Route: 065
  10. PROVENTIL HFA [Concomitant]
     Active Substance: ALBUTEROL SULFATE
     Indication: Product used for unknown indication
     Route: 065
  11. XANAX [Concomitant]
     Active Substance: ALPRAZOLAM
     Indication: Product used for unknown indication
     Route: 065
  12. ZOVIRAX [Concomitant]
     Active Substance: ACYCLOVIR
     Indication: Product used for unknown indication
     Route: 065

REACTIONS (1)
  - Drug ineffective [Unknown]
